FAERS Safety Report 19570051 (Version 1)
Quarter: 2021Q3

REPORT INFORMATION
  Report Type: Spontaneous
  Country: CN (occurrence: CN)
  Receive Date: 20210716
  Receipt Date: 20210716
  Transmission Date: 20211014
  Serious: Yes (Other)
  Sender: FDA-Public Use
  Company Number: CN-PFIZER INC-2021831763

PATIENT
  Age: 12 Month
  Sex: Male
  Weight: 12.5 kg

DRUGS (1)
  1. SOLU?MEDROL [Suspect]
     Active Substance: METHYLPREDNISOLONE SODIUM SUCCINATE
     Dosage: 200 MG, 1X/DAY (PULSE THERAPY OF SOLU?MEDROL 200MG IVGTT * 3D)
     Route: 041
     Dates: start: 20210617, end: 20210619

REACTIONS (1)
  - Sinus tachycardia [Unknown]

NARRATIVE: CASE EVENT DATE: 20210617
